FAERS Safety Report 18382426 (Version 1)
Quarter: 2020Q3

REPORT INFORMATION
  Report Type: Spontaneous
  Country: US (occurrence: US)
  Receive Date: 20200925
  Receipt Date: 20200925
  Transmission Date: 20201103
  Serious: Yes (Hospitalization, Other)
  Sender: FDA-Public Use
  Company Number: None

PATIENT
  Age: 47 Year
  Sex: Female

DRUGS (2)
  1. CARBOPLATIN (CARBOPLATIN) (UNKNOWN) (CARBOPLATIN) [Suspect]
     Active Substance: CARBOPLATIN
     Indication: OVARIAN CANCER
  2. J AND J BABY POWDER (ZINC OXIDE) [Suspect]
     Active Substance: ZINC OXIDE
     Indication: THERAPEUTIC SKIN CARE TOPICAL
     Route: 061
     Dates: start: 1970, end: 2002

REACTIONS (27)
  - Fatigue [None]
  - Adnexa uteri mass [None]
  - Malaise [None]
  - Dysfunctional uterine bleeding [None]
  - Gastrointestinal sounds abnormal [None]
  - Loss of consciousness [None]
  - Hysterosalpingo-oophorectomy [None]
  - Endosalpingiosis [None]
  - Fibrosis [None]
  - Depression [None]
  - Vulvovaginal pain [None]
  - Adhesion [None]
  - Appendicectomy [None]
  - Ovarian cancer [None]
  - Haemoglobin decreased [None]
  - Heart rate increased [None]
  - Urine leukocyte esterase positive [None]
  - Syncope [None]
  - Illness [None]
  - Abdominal pain [None]
  - Ovarian mass [None]
  - Seizure [None]
  - Hypothyroidism [None]
  - Nausea [None]
  - Weight decreased [None]
  - Urinary tract infection [None]
  - Pelvic pain [None]

NARRATIVE: CASE EVENT DATE: 20020506
